FAERS Safety Report 4391480-9 (Version None)
Quarter: 2004Q3

REPORT INFORMATION
  Report Type: 
  Country: None (occurrence: None)
  Receive Date: 20040701
  Receipt Date: 20040621
  Transmission Date: 20050211
  Serious: Yes (Hospitalization)
  Sender: FDA-Public Use
  Company Number: 04P-163-0254224-00

PATIENT
  Age: 13 Year
  Sex: Female
  Weight: 53.0709 kg

DRUGS (2)
  1. BIAXIN [Suspect]
     Indication: EAR INFECTION
     Dosage: SEE IMAGE
     Route: 048
     Dates: start: 20020101, end: 20020101
  2. BIAXIN [Suspect]
     Indication: EAR INFECTION
     Dosage: SEE IMAGE
     Route: 048
     Dates: start: 20040317, end: 20040318

REACTIONS (5)
  - DIFFICULTY IN WALKING [None]
  - DIPLEGIA [None]
  - GAIT DISTURBANCE [None]
  - MUSCLE CRAMP [None]
  - PAIN IN EXTREMITY [None]
